FAERS Safety Report 5402747-7 (Version None)
Quarter: 2007Q3

REPORT INFORMATION
  Report Type: 
  Country: None (occurrence: None)
  Receive Date: 20070730
  Receipt Date: 20070730
  Transmission Date: 20080115
  Serious: Yes (Hospitalization)
  Sender: FDA-Public Use
  Company Number: None

PATIENT
  Age: 77 Year
  Sex: Male

DRUGS (2)
  1. POTASSIUM CHLORIDE [Suspect]
     Indication: HYPOKALAEMIA
     Dosage: 40MEQ TID PO
     Route: 048
     Dates: start: 20061214, end: 20070623
  2. SPIRONOLACTONE [Suspect]
     Indication: CARDIAC FAILURE
     Dosage: 25MG EVERY DAY PO
     Route: 048
     Dates: start: 20070322, end: 20070623

REACTIONS (3)
  - DYSPNOEA [None]
  - HYPERKALAEMIA [None]
  - RENAL FAILURE ACUTE [None]
